FAERS Safety Report 9700685 (Version 1)
Quarter: 2013Q4

REPORT INFORMATION
  Report Type: Spontaneous
  Country: US (occurrence: None)
  Receive Date: 20131120
  Receipt Date: 20131120
  Transmission Date: 20140711
  Serious: Yes (Life-Threatening, Hospitalization)
  Sender: FDA-Public Use
  Company Number: None

PATIENT
  Age: 57 Year
  Sex: Male
  Weight: 115 kg

DRUGS (5)
  1. JANUMET [Suspect]
     Indication: TYPE 2 DIABETES MELLITUS
     Dosage: 1 PILL
     Route: 048
     Dates: start: 20120718, end: 20131021
  2. PRILOSEC [Concomitant]
  3. GEMFIBROZIL [Concomitant]
  4. ZOLOFT [Concomitant]
  5. ACCUPRIL [Concomitant]

REACTIONS (8)
  - Pancreatitis acute [None]
  - Diabetic ketoacidosis [None]
  - Acute myocardial infarction [None]
  - Atrial fibrillation [None]
  - Renal failure acute [None]
  - Pleural effusion [None]
  - Staphylococcal infection [None]
  - Diarrhoea [None]
